FAERS Safety Report 8669599 (Version 2)
Quarter: 2012Q4

REPORT INFORMATION
  Report Type: Report from Study
  Country: JP (occurrence: JP)
  Receive Date: 20120718
  Receipt Date: 20120912
  Transmission Date: 20130627
  Serious: Yes (Hospitalization)
  Sender: FDA-Public Use
  Company Number: JP-009507513-1207JPN001581

PATIENT
  Age: 64 Year
  Sex: Male
  Weight: 65 kg

DRUGS (10)
  1. PEGINTRON [Suspect]
     Indication: HEPATITIS C
     Dosage: 1.5 Microgram per kilogram, UNK
     Route: 058
     Dates: start: 20120618, end: 20120717
  2. PEGINTRON [Suspect]
     Dosage: 1.5 Microgram per kilogram, daily dose unknown
     Route: 058
     Dates: start: 20120724
  3. REBETOL [Suspect]
     Indication: HEPATITIS C
     Dosage: 800 mg, qd
     Route: 048
     Dates: start: 20120618, end: 20120724
  4. REBETOL [Suspect]
     Dosage: 200 mg, qd
     Route: 048
     Dates: start: 20120731
  5. TELAVIC [Suspect]
     Indication: HEPATITIS C
     Dosage: 2250 mg, qd
     Route: 048
     Dates: start: 20120618, end: 20120621
  6. TELAVIC [Suspect]
     Dosage: 1500 mg, qd
     Route: 048
     Dates: start: 20120625, end: 20120724
  7. METACT [Concomitant]
     Indication: DIABETES MELLITUS
     Dosage: 1 UNK, UNK
     Route: 048
  8. GLACTIV [Concomitant]
     Indication: DIABETES MELLITUS
     Dosage: 100 mg, qd
     Route: 048
  9. METGLUCO [Concomitant]
     Indication: DIABETES MELLITUS
     Dosage: 500 mg, qd
     Route: 048
  10. LENDORMIN [Concomitant]
     Indication: INSOMNIA
     Dosage: 0.25mg/day, as needed
     Route: 048

REACTIONS (1)
  - Erythema multiforme [Recovered/Resolved]
